FAERS Safety Report 13649306 (Version 1)
Quarter: 2017Q2

REPORT INFORMATION
  Report Type: Spontaneous
  Country: JP (occurrence: JP)
  Receive Date: 20170613
  Receipt Date: 20170613
  Transmission Date: 20170830
  Serious: Yes (Other)
  Sender: FDA-Public Use
  Company Number: JP-TAKEDA-2017TJP012189

PATIENT
  Age: 57 Year
  Sex: Male

DRUGS (2)
  1. TICLOPIDINE HYDROCHLORIDE. [Concomitant]
     Active Substance: TICLOPIDINE HYDROCHLORIDE
     Indication: PROPHYLAXIS
     Dosage: UNK
  2. TAKEPRON CAPSULES 15 [Suspect]
     Active Substance: LANSOPRAZOLE
     Indication: PRODUCT USED FOR UNKNOWN INDICATION
     Dosage: 15 MG, UNK
     Route: 065

REACTIONS (3)
  - Adenocarcinoma gastric [Recovered/Resolved]
  - Gastric polyps [Recovered/Resolved]
  - Hypergastrinaemia [Recovered/Resolved]
